FAERS Safety Report 13041043 (Version 1)
Quarter: 2016Q4

REPORT INFORMATION
  Report Type: Spontaneous
  Country: US (occurrence: US)
  Receive Date: 20161219
  Receipt Date: 20161219
  Transmission Date: 20170207
  Serious: Yes (Other)
  Sender: FDA-Public Use
  Company Number: US-ROCHE-1078542

PATIENT
  Age: 76 Year
  Sex: Male
  Weight: 90.8 kg

DRUGS (4)
  1. ZELBORAF [Suspect]
     Active Substance: VEMURAFENIB
     Route: 048
     Dates: start: 201206
  2. ZELBORAF [Suspect]
     Active Substance: VEMURAFENIB
     Indication: METASTATIC MALIGNANT MELANOMA
     Route: 048
     Dates: start: 201206, end: 201206
  3. ZELBORAF [Suspect]
     Active Substance: VEMURAFENIB
     Route: 048
     Dates: start: 201206
  4. BENADRYL [Concomitant]
     Active Substance: DIPHENHYDRAMINE HYDROCHLORIDE
     Indication: PRURITUS
     Route: 048

REACTIONS (11)
  - Pruritus [Unknown]
  - Pruritus [Recovered/Resolved]
  - Skin papilloma [Unknown]
  - Skin exfoliation [Recovered/Resolved]
  - Rash [Unknown]
  - Fatigue [Unknown]
  - Squamous cell carcinoma of skin [Recovering/Resolving]
  - Lip swelling [Recovered/Resolved]
  - Mass [Unknown]
  - Alopecia [Unknown]
  - Hyperkeratosis [Unknown]

NARRATIVE: CASE EVENT DATE: 201206
